FAERS Safety Report 4838887-0 (Version None)
Quarter: 2005Q4

REPORT INFORMATION
  Report Type: 
  Country: None (occurrence: None)
  Receive Date: 20051129
  Receipt Date: 20050906
  Transmission Date: 20060501
  Serious: No
  Sender: FDA-Public Use
  Company Number: US-GLAXOSMITHKLINE-A0573105A

PATIENT
  Age: 77 Year
  Sex: Female

DRUGS (7)
  1. LOTRONEX [Suspect]
     Indication: IRRITABLE BOWEL SYNDROME
     Dosage: 1MG PER DAY
     Route: 048
  2. COZAAR [Concomitant]
  3. TOPROL-XL [Concomitant]
  4. OGEN [Concomitant]
  5. LEVOXYL [Concomitant]
  6. FIBER SUPPLEMENT [Concomitant]
  7. BENEFIBER [Concomitant]

REACTIONS (2)
  - DRY EYE [None]
  - FAECES HARD [None]
